FAERS Safety Report 8894076 (Version 1)
Quarter: 2012Q4

REPORT INFORMATION
  Report Type: 
  Country: CH (occurrence: CH)
  Receive Date: 20121108
  Receipt Date: 20121108
  Transmission Date: 20130627
  Serious: Yes (Other)
  Sender: FDA-Public Use
  Company Number: CH-TEVA-369089USA

PATIENT
  Sex: Male

DRUGS (6)
  1. BENDAMUSTINE [Suspect]
  2. ALLOPURINOL [Concomitant]
  3. TIENAM [Concomitant]
  4. GENTAMYCIN [Concomitant]
  5. VANCOMYCIN [Concomitant]
  6. AMBISOME [Concomitant]

REACTIONS (3)
  - Colitis [Unknown]
  - Skin reaction [Unknown]
  - Enterococcal sepsis [Unknown]
